FAERS Safety Report 4773016-3 (Version None)
Quarter: 2005Q3

REPORT INFORMATION
  Report Type: 
  Country: None (occurrence: None)
  Receive Date: 20050916
  Receipt Date: 20050907
  Transmission Date: 20060218
  Serious: Yes (Other)
  Sender: FDA-Public Use
  Company Number: 2005125073

PATIENT
  Age: 19 Year
  Sex: Female
  Weight: 50.8029 kg

DRUGS (2)
  1. BEXTRA [Suspect]
     Indication: DYSMENORRHOEA
     Dates: start: 20040101
  2. CONTRACEPTIVE , UNSPECIFIED (CONTRACEPTIVE, UNSPECIFIED) [Concomitant]

REACTIONS (7)
  - BLISTER [None]
  - LIP PAIN [None]
  - NASAL OEDEMA [None]
  - PURULENCE [None]
  - SKIN DISORDER [None]
  - SKIN EXFOLIATION [None]
  - TANNING [None]
